FAERS Safety Report 21532884 (Version 1)
Quarter: 2022Q4

REPORT INFORMATION
  Report Type: Spontaneous
  Country: HR (occurrence: HR)
  Receive Date: 20221101
  Receipt Date: 20221101
  Transmission Date: 20230112
  Serious: Yes (Other)
  Sender: FDA-Public Use
  Company Number: HR-NOVARTISPH-NVSC2022HR239858

PATIENT
  Age: 78 Year
  Sex: Male

DRUGS (6)
  1. ACETAMINOPHEN [Suspect]
     Active Substance: ACETAMINOPHEN
     Indication: Product used for unknown indication
     Dosage: UNK, PRN
     Route: 065
  2. ASPIRIN [Suspect]
     Active Substance: ASPIRIN
     Indication: Product used for unknown indication
     Dosage: 2 DF, QD
     Route: 065
  3. DIAZEPAM [Concomitant]
     Active Substance: DIAZEPAM
     Indication: Product used for unknown indication
     Dosage: UNK UNK, PRN
     Route: 065
  4. ROSUVASTATIN [Concomitant]
     Active Substance: ROSUVASTATIN
     Indication: Product used for unknown indication
     Dosage: 2 DF
     Route: 065
  5. RASAGILINA TEVA [Concomitant]
     Indication: Product used for unknown indication
     Dosage: 2 DF
     Route: 065
  6. PROPRANOLOL [Concomitant]
     Active Substance: PROPRANOLOL HYDROCHLORIDE
     Indication: Product used for unknown indication
     Dosage: 2 DF
     Route: 065

REACTIONS (15)
  - Cardiac failure [Unknown]
  - Atrial fibrillation [Unknown]
  - Parkinson^s disease [Unknown]
  - Cardiopulmonary failure [Unknown]
  - Blood pressure increased [Unknown]
  - Cardiomegaly [Unknown]
  - Tremor [Unknown]
  - Hypertonia [Unknown]
  - Hypertension [Unknown]
  - Cardiac murmur [Unknown]
  - Dyspnoea [Unknown]
  - Oedema peripheral [Unknown]
  - Tachyarrhythmia [Unknown]
  - Fatigue [Unknown]
  - Arteriosclerosis [Unknown]
